FAERS Safety Report 7110671-7 (Version None)
Quarter: 2010Q4

REPORT INFORMATION
  Report Type: 
  Country: None (occurrence: None)
  Receive Date: 20101118
  Receipt Date: 20101110
  Transmission Date: 20110411
  Serious: Yes (Other)
  Sender: FDA-Public Use
  Company Number: A0797430A

PATIENT
  Age: 44 Year
  Sex: Female

DRUGS (2)
  1. AVANDIA [Suspect]
     Dosage: 4MG PER DAY
     Route: 048
     Dates: start: 20050317, end: 20080721
  2. AVANDAMET [Suspect]
     Route: 048
     Dates: start: 20040810, end: 20050901

REACTIONS (1)
  - CEREBROVASCULAR ACCIDENT [None]
